FAERS Safety Report 5959932-5 (Version None)
Quarter: 2008Q4

REPORT INFORMATION
  Report Type: 
  Country: None (occurrence: None)
  Receive Date: 20081119
  Receipt Date: 20081119
  Transmission Date: 20090506
  Serious: No
  Sender: FDA-Public Use
  Company Number: None

PATIENT
  Age: 66 Year
  Sex: Female
  Weight: 130 kg

DRUGS (14)
  1. WARFARIN SODIUM [Suspect]
     Indication: ATRIAL FIBRILLATION
     Dosage: 6MG MF (PO) 4MG YEARS - TO DATE
     Route: 048
  2. WARFARIN SODIUM [Suspect]
     Indication: CEREBROVASCULAR ACCIDENT
     Dosage: 5MG T,W,TH,SAT,SUN 5-6MG
     Dates: start: 20080724, end: 20080729
  3. AMIODARONE HCL [Concomitant]
  4. CLONAZEPAM [Concomitant]
  5. CYCLOBENZAPRINE HCL [Concomitant]
  6. METOLAZONE [Concomitant]
  7. NYSTATIN [Concomitant]
  8. PARACALCITOL [Concomitant]
  9. PREDNISONE TAB [Concomitant]
  10. SIMVASTATIN [Concomitant]
  11. SUCRALFATE [Concomitant]
  12. ALBUTEROL [Concomitant]
  13. AMMONIUM LACTATE LOTION [Concomitant]
  14. BRIMODINE OPTHALMIC [Concomitant]

REACTIONS (4)
  - FLUID OVERLOAD [None]
  - HAEMATOCHEZIA [None]
  - INTERNATIONAL NORMALISED RATIO DECREASED [None]
  - INTERNATIONAL NORMALISED RATIO INCREASED [None]
